FAERS Safety Report 5416037-X (Version None)
Quarter: 2007Q3

REPORT INFORMATION
  Report Type: 
  Country: None (occurrence: None)
  Receive Date: 20070815
  Receipt Date: 20070810
  Transmission Date: 20080115
  Serious: Yes (Death, Hospitalization)
  Sender: FDA-Public Use
  Company Number: US-GILEAD-2007-0011095

PATIENT
  Sex: Male
  Weight: 84.898 kg

DRUGS (3)
  1. ATRIPLA [Suspect]
     Indication: HIV INFECTION
     Route: 048
     Dates: start: 20070109, end: 20070112
  2. NORVASC [Concomitant]
     Indication: HYPERTENSION
  3. HYDROCHLOROTHIAZIDE [Concomitant]
     Route: 048

REACTIONS (1)
  - HEPATITIS FULMINANT [None]
